FAERS Safety Report 5562759-X (Version None)
Quarter: 2007Q4

REPORT INFORMATION
  Report Type: 
  Country: None (occurrence: None)
  Receive Date: 20071217
  Receipt Date: 20071211
  Transmission Date: 20080405
  Serious: Yes (Other)
  Sender: FDA-Public Use
  Company Number: US-BAYER-200716093NA

PATIENT
  Age: 62 Year
  Sex: Female

DRUGS (1)
  1. TRASYLOL [Suspect]
     Indication: MITRAL VALVE REPAIR

REACTIONS (4)
  - ADVERSE EVENT [None]
  - EMOTIONAL DISTRESS [None]
  - INJURY [None]
  - RENAL FAILURE ACUTE [None]
